FAERS Safety Report 24692311 (Version 2)
Quarter: 2025Q1

REPORT INFORMATION
  Report Type: Spontaneous
  Country: US (occurrence: US)
  Receive Date: 20241203
  Receipt Date: 20250207
  Transmission Date: 20250409
  Serious: Yes (Other)
  Sender: ELI LILLY AND COMPANY
  Company Number: US-ELI_LILLY_AND_COMPANY-US202411014863

PATIENT
  Age: 76 Year
  Sex: Female

DRUGS (3)
  1. HUMULIN N [Suspect]
     Active Substance: INSULIN HUMAN
     Indication: Type 2 diabetes mellitus
     Dosage: 15-20 U, QOD
     Route: 065
  2. HUMULIN N [Suspect]
     Active Substance: INSULIN HUMAN
     Dosage: 60 U, TID
     Route: 058
  3. OZEMPIC [Suspect]
     Active Substance: SEMAGLUTIDE
     Indication: Type 2 diabetes mellitus
     Route: 065

REACTIONS (7)
  - Weight decreased [Recovered/Resolved]
  - Hypoglycaemia [Unknown]
  - Glycosylated haemoglobin abnormal [Unknown]
  - Intercepted product dispensing error [Unknown]
  - Anxiety [Unknown]
  - Depression [Unknown]
  - Seasonal affective disorder [Unknown]

NARRATIVE: CASE EVENT DATE: 20210601
